FAERS Safety Report 9643896 (Version 1)
Quarter: 2013Q4

REPORT INFORMATION
  Report Type: Spontaneous
  Country: US (occurrence: US)
  Receive Date: 20131024
  Receipt Date: 20131024
  Transmission Date: 20140711
  Serious: No
  Sender: FDA-Public Use
  Company Number: US-009507513-1310USA008620

PATIENT
  Age: 39 Year
  Sex: Male

DRUGS (3)
  1. SAPHRIS [Suspect]
     Indication: BIPOLAR DISORDER
     Dosage: RAPID DISSOLVE BCF 10 MG, HS
     Route: 060
     Dates: start: 201304
  2. BUSPAR [Concomitant]
  3. ZOLOFT [Concomitant]

REACTIONS (2)
  - Indifference [Recovered/Resolved]
  - Feeling abnormal [Recovered/Resolved]
